FAERS Safety Report 18548753 (Version 1)
Quarter: 2020Q4

REPORT INFORMATION
  Report Type: Other
  Country: CA (occurrence: CA)
  Receive Date: 20201125
  Receipt Date: 20201125
  Transmission Date: 20210114
  Serious: Yes (Other)
  Sender: FDA-Public Use
  Company Number: CA-CELLTRION INC.-2020CA032109

PATIENT

DRUGS (24)
  1. RITUXIMAB (UNKNOWN) [Suspect]
     Active Substance: RITUXIMAB
     Indication: PRODUCT USED FOR UNKNOWN INDICATION
     Route: 042
  2. HUMIRA [Suspect]
     Active Substance: ADALIMUMAB
     Dosage: UNK
     Route: 065
  3. METHYLPREDNISOLONE. [Suspect]
     Active Substance: METHYLPREDNISOLONE
     Indication: PRODUCT USED FOR UNKNOWN INDICATION
     Dosage: 40.0 MILLIGRAM
     Route: 048
  4. ACTEMRA [Suspect]
     Active Substance: TOCILIZUMAB
     Indication: PRODUCT USED FOR UNKNOWN INDICATION
     Dosage: 4.0 MG/KG
     Route: 042
  5. APO-FOLIC ACID [Suspect]
     Active Substance: FOLIC ACID
     Indication: PRODUCT USED FOR UNKNOWN INDICATION
     Dosage: 5.0 MILLIGRAM, 1 EVERY 1 WEEK
     Route: 048
  6. ARAVA [Suspect]
     Active Substance: LEFLUNOMIDE
     Indication: PRODUCT USED FOR UNKNOWN INDICATION
     Dosage: 4.0 MILLIGRAM
     Route: 065
  7. ENBREL [Suspect]
     Active Substance: ETANERCEPT
     Indication: PRODUCT USED FOR UNKNOWN INDICATION
     Route: 058
  8. NAPROXEN. [Suspect]
     Active Substance: NAPROXEN
     Dosage: 500.0 MILLIGRAM, 2 EVERY 1 DAY
     Route: 048
  9. ARAVA [Suspect]
     Active Substance: LEFLUNOMIDE
     Dosage: 20.0 MILLIGRAM
     Route: 065
  10. FOLIC ACID. [Suspect]
     Active Substance: FOLIC ACID
     Dosage: 5.0 MILLIGRAM, 1 EVERY 1 WEEK
     Route: 048
  11. LEFLUNOMIDE. [Suspect]
     Active Substance: LEFLUNOMIDE
     Indication: PRODUCT USED FOR UNKNOWN INDICATION
     Dosage: 20.0 MILLIGRAM
     Route: 065
  12. HUMIRA [Suspect]
     Active Substance: ADALIMUMAB
     Indication: PRODUCT USED FOR UNKNOWN INDICATION
     Dosage: 40.0 MILLIGRAM
     Route: 058
  13. METHOTREXATE. [Suspect]
     Active Substance: METHOTREXATE
     Dosage: 2.5 MILLIGRAM
     Route: 048
  14. PARIET [Suspect]
     Active Substance: RABEPRAZOLE SODIUM
     Dosage: 20.0 MILLIGRAM, 4 EVERY 1 DAY
     Route: 048
  15. IBUPROFEN. [Suspect]
     Active Substance: IBUPROFEN
     Indication: PRODUCT USED FOR UNKNOWN INDICATION
     Dosage: 600.0 MILLIGRAM, 3 EVERY 1 DAY
     Route: 048
  16. NAPROXEN. [Suspect]
     Active Substance: NAPROXEN
     Dosage: 500.0 MILLIGRAM
     Route: 048
  17. NAPROXEN. [Suspect]
     Active Substance: NAPROXEN
     Dosage: 500.0 MILLIGRAM, 2 EVERY 1 DAY
     Route: 048
  18. APO-IBUPROFEN [Suspect]
     Active Substance: IBUPROFEN
     Indication: PRODUCT USED FOR UNKNOWN INDICATION
     Dosage: 600.0 MILLIGRAM, 3 EVERY 1 WEEK
     Route: 048
  19. FOLIC ACID. [Suspect]
     Active Substance: FOLIC ACID
     Indication: PRODUCT USED FOR UNKNOWN INDICATION
     Dosage: 5.0 MILLIGRAM, 1 EVERY 1 WEEK
     Route: 048
  20. METHOTREXATE. [Suspect]
     Active Substance: METHOTREXATE
     Indication: PRODUCT USED FOR UNKNOWN INDICATION
     Dosage: 2.5 MILLIGRAM
     Route: 048
  21. NAPROXEN. [Suspect]
     Active Substance: NAPROXEN
     Dosage: 500.0 MILLIGRAM, 1 EVERY 1 DAY
     Route: 048
  22. PARIET [Suspect]
     Active Substance: RABEPRAZOLE SODIUM
     Indication: PRODUCT USED FOR UNKNOWN INDICATION
     Dosage: 20.0 MILLIGRAM, 4 EVERY 1 DAY
     Route: 048
  23. METHOTREXATE. [Suspect]
     Active Substance: METHOTREXATE
     Dosage: 25.0 MILLIGRAM, 1 EVERY 1 WEEK
     Route: 048
  24. NAPROXEN. [Suspect]
     Active Substance: NAPROXEN
     Indication: PRODUCT USED FOR UNKNOWN INDICATION
     Dosage: 750.0 MILLIGRAM, 2 EVERY 1 DAY
     Route: 048

REACTIONS (18)
  - Blood alkaline phosphatase increased [Not Recovered/Not Resolved]
  - Pneumonia [Not Recovered/Not Resolved]
  - Therapeutic response decreased [Not Recovered/Not Resolved]
  - Hypersensitivity [Not Recovered/Not Resolved]
  - Mouth ulceration [Not Recovered/Not Resolved]
  - Therapeutic product effect decreased [Not Recovered/Not Resolved]
  - Stress [Not Recovered/Not Resolved]
  - Joint swelling [Not Recovered/Not Resolved]
  - Drug ineffective [Not Recovered/Not Resolved]
  - Swelling [Not Recovered/Not Resolved]
  - Erythema [Not Recovered/Not Resolved]
  - Condition aggravated [Not Recovered/Not Resolved]
  - C-reactive protein increased [Not Recovered/Not Resolved]
  - Nasal ulcer [Not Recovered/Not Resolved]
  - Rheumatoid arthritis [Not Recovered/Not Resolved]
  - Pain [Not Recovered/Not Resolved]
  - Obesity [Not Recovered/Not Resolved]
  - Drug hypersensitivity [Not Recovered/Not Resolved]
